FAERS Safety Report 12321903 (Version 2)
Quarter: 2016Q4

REPORT INFORMATION
  Report Type: Spontaneous
  Country: US (occurrence: US)
  Receive Date: 20160502
  Receipt Date: 20161018
  Transmission Date: 20170207
  Serious: Yes (Other)
  Sender: FDA-Public Use
  Company Number: US-GLAXOSMITHKLINE-US2016060306

PATIENT
  Sex: Female

DRUGS (17)
  1. ALBUTEROL NEBULIZER [Concomitant]
     Active Substance: ALBUTEROL
  2. ALLEGRA [Concomitant]
     Active Substance: FEXOFENADINE HYDROCHLORIDE
  3. LOVASTATIN. [Concomitant]
     Active Substance: LOVASTATIN
  4. GLIMEPIRIDE. [Concomitant]
     Active Substance: GLIMEPIRIDE
  5. AMLODIPINE [Concomitant]
     Active Substance: AMLODIPINE BESYLATE
  6. IBUPROFEN. [Concomitant]
     Active Substance: IBUPROFEN
  7. ANASTROZOLE. [Concomitant]
     Active Substance: ANASTROZOLE
  8. VENTOLIN [Concomitant]
     Active Substance: ALBUTEROL SULFATE
  9. METFORMIN [Concomitant]
     Active Substance: METFORMIN HYDROCHLORIDE
  10. ENALAPRIL [Concomitant]
     Active Substance: ENALAPRIL
  11. LASIX [Concomitant]
     Active Substance: FUROSEMIDE
  12. IBANDRONATE [Concomitant]
     Active Substance: IBANDRONATE SODIUM
  13. ADVAIR DISKUS [Suspect]
     Active Substance: FLUTICASONE PROPIONATE\SALMETEROL XINAFOATE
     Indication: BRONCHITIS CHRONIC
  14. CELEXA [Concomitant]
     Active Substance: CITALOPRAM HYDROBROMIDE
  15. ADVAIR DISKUS [Suspect]
     Active Substance: FLUTICASONE PROPIONATE\SALMETEROL XINAFOATE
     Indication: CHRONIC OBSTRUCTIVE PULMONARY DISEASE
     Dosage: 1 PUFF(S), BID
     Route: 055
  16. FLONASE [Concomitant]
     Active Substance: FLUTICASONE PROPIONATE
  17. THEOPHYLLINE [Concomitant]
     Active Substance: THEOPHYLLINE ANHYDROUS

REACTIONS (5)
  - Lung disorder [Unknown]
  - Breast cancer [Unknown]
  - Diabetes mellitus [Unknown]
  - Back pain [Unknown]
  - Pain [Unknown]

NARRATIVE: CASE EVENT DATE: 2009
